FAERS Safety Report 8047459-9 (Version None)
Quarter: 2012Q1

REPORT INFORMATION
  Report Type: 
  Country: None (occurrence: None)
  Receive Date: 20120116
  Receipt Date: 20120110
  Transmission Date: 20120608
  Serious: Yes (Other)
  Sender: FDA-Public Use
  Company Number: BR-JNJFOC-20120102268

PATIENT
  Sex: Male
  Weight: 110 kg

DRUGS (1)
  1. LISTERINE WHITENING ANTIMANCHAS ANTI-SEPTICO BUCAL [Suspect]
     Indication: PRODUCT USED FOR UNKNOWN INDICATION
     Dosage: FOR ALMOST 30 DAYS
     Route: 048
     Dates: start: 20111231, end: 20111231

REACTIONS (4)
  - WOUND [None]
  - GINGIVAL ERYTHEMA [None]
  - AGEUSIA [None]
  - APPLICATION SITE EXFOLIATION [None]
